FAERS Safety Report 7207741-1 (Version None)
Quarter: 2011Q1

REPORT INFORMATION
  Report Type: 
  Country: None (occurrence: None)
  Receive Date: 20110103
  Receipt Date: 20101221
  Transmission Date: 20110831
  Serious: Yes (Other)
  Sender: FDA-Public Use
  Company Number: US-JNJFOC-20100304010

PATIENT
  Sex: Female
  Weight: 68.04 kg

DRUGS (2)
  1. METFORMIN HCL [Concomitant]
     Indication: DIABETES MELLITUS
  2. EXTRA STRENGTH TYLENOL PM [Suspect]
     Indication: INSOMNIA
     Dosage: 2 TABLETS
     Route: 048

REACTIONS (5)
  - NAUSEA [None]
  - VOMITING [None]
  - DIABETES MELLITUS INADEQUATE CONTROL [None]
  - DIARRHOEA [None]
  - PRODUCT QUALITY ISSUE [None]
